FAERS Safety Report 5345773-9 (Version None)
Quarter: 2007Q2

REPORT INFORMATION
  Report Type: 
  Country: None (occurrence: None)
  Receive Date: 20070426
  Receipt Date: 20070103
  Transmission Date: 20071010
  Serious: Yes (Hospitalization)
  Sender: FDA-Public Use
  Company Number: US-JNJFOC-20070100757

PATIENT
  Age: 39 Year
  Sex: Male

DRUGS (2)
  1. ULTRAM [Suspect]
     Indication: PROCEDURAL PAIN
  2. VICODIN [Suspect]
     Indication: PROCEDURAL PAIN

REACTIONS (1)
  - DRUG DEPENDENCE [None]
